FAERS Safety Report 18590637 (Version 1)
Quarter: 2020Q4

REPORT INFORMATION
  Report Type: Spontaneous
  Country: CN (occurrence: CN)
  Receive Date: 20201208
  Receipt Date: 20201208
  Transmission Date: 20210114
  Serious: Yes (Hospitalization, Other)
  Sender: FDA-Public Use
  Company Number: CN-ASTRAZENECA-2020SF60402

PATIENT
  Age: 89 Year
  Sex: Male
  Weight: 50 kg

DRUGS (4)
  1. BUDESONIDE. [Suspect]
     Active Substance: BUDESONIDE
     Indication: ASTHMA
     Route: 055
     Dates: start: 20201119, end: 20201121
  2. ACETYLCYSTEINE. [Suspect]
     Active Substance: ACETYLCYSTEINE
     Indication: ASTHMA
     Route: 055
     Dates: start: 20201119, end: 20201121
  3. ACETYLCYSTEINE. [Suspect]
     Active Substance: ACETYLCYSTEINE
     Indication: INFLAMMATION
     Route: 055
     Dates: start: 20201119, end: 20201121
  4. BUDESONIDE. [Suspect]
     Active Substance: BUDESONIDE
     Indication: INFLAMMATION
     Route: 055
     Dates: start: 20201119, end: 20201121

REACTIONS (7)
  - Cardiac discomfort [Recovering/Resolving]
  - Asphyxia [Unknown]
  - Wheezing [Unknown]
  - Nasopharyngitis [Unknown]
  - Cardiac disorder [Unknown]
  - Flushing [Recovering/Resolving]
  - Dyspnoea [Recovering/Resolving]

NARRATIVE: CASE EVENT DATE: 20201121
